FAERS Safety Report 7141844-5 (Version None)
Quarter: 2010Q4

REPORT INFORMATION
  Report Type: 
  Country: None (occurrence: None)
  Receive Date: 20101207
  Receipt Date: 20101129
  Transmission Date: 20110411
  Serious: Yes (Hospitalization)
  Sender: FDA-Public Use
  Company Number: CN-ROCHE-744799

PATIENT
  Age: 70 Year
  Sex: Female
  Weight: 45 kg

DRUGS (2)
  1. XELODA [Suspect]
     Route: 048
     Dates: start: 20100831, end: 20101025
  2. XELODA [Suspect]
     Route: 048

REACTIONS (2)
  - ALOPECIA [None]
  - FOREIGN BODY [None]
